FAERS Safety Report 4777860-8 (Version None)
Quarter: 2005Q3

REPORT INFORMATION
  Report Type: 
  Country: None (occurrence: None)
  Receive Date: 20050926
  Receipt Date: 20050818
  Transmission Date: 20060218
  Serious: Yes (Death)
  Sender: FDA-Public Use
  Company Number: US-BOEHRINGER INGELHEIM PHARMACEUTICALS, INC.-2005-BP-14356BP

PATIENT
  Sex: Male
  Weight: 55.3 kg

DRUGS (1)
  1. TIPRANAVIR / RITONAVIR CAPSULES [Suspect]
     Indication: HIV INFECTION
     Route: 048
     Dates: end: 20050516

REACTIONS (4)
  - DEHYDRATION [None]
  - DIARRHOEA [None]
  - END STAGE AIDS [None]
  - HYPOTENSION [None]
